FAERS Safety Report 8157814-4 (Version None)
Quarter: 2012Q1

REPORT INFORMATION
  Report Type: 
  Country: None (occurrence: None)
  Receive Date: 20120222
  Receipt Date: 20120215
  Transmission Date: 20120608
  Serious: No
  Sender: FDA-Public Use
  Company Number: US-B.I. PHARMACEUTICALS,INC./RIDGEFIELD-2012-BP-00163BP

PATIENT
  Sex: Female
  Weight: 97.07 kg

DRUGS (7)
  1. PRADAXA [Suspect]
     Indication: ATRIAL FIBRILLATION
     Dosage: 300 MG
     Route: 048
     Dates: start: 20111006
  2. PRADAXA [Suspect]
     Indication: CEREBROVASCULAR ACCIDENT PROPHYLAXIS
  3. CYCLOBENZAPRINE [Concomitant]
     Indication: FIBROMYALGIA
     Dosage: 10 MG
     Route: 048
     Dates: start: 20000101
  4. ALPRAZOLAM [Concomitant]
     Indication: FIBROMYALGIA
     Dosage: 1.25 MG
     Route: 048
     Dates: start: 20000101
  5. METOPROLOL TARTRATE [Concomitant]
     Indication: ATRIAL FIBRILLATION
     Dosage: 50 MG
     Route: 048
     Dates: start: 20110901
  6. LOVASTATIN [Concomitant]
     Indication: BLOOD CHOLESTEROL INCREASED
     Dosage: 20 MG
     Route: 048
     Dates: start: 20090101
  7. LISINOPRIL [Concomitant]
     Indication: HYPERTENSION
     Dosage: 40 MG
     Route: 048
     Dates: start: 20090101

REACTIONS (1)
  - HALLUCINATION [None]
